FAERS Safety Report 22653600 (Version 3)
Quarter: 2023Q4

REPORT INFORMATION
  Report Type: Spontaneous
  Country: US (occurrence: US)
  Receive Date: 20230629
  Receipt Date: 20231017
  Transmission Date: 20240109
  Serious: No
  Sender: FDA-Public Use
  Company Number: US-009507513-2306USA000106

PATIENT

DRUGS (1)
  1. JANUVIA [Suspect]
     Active Substance: SITAGLIPTIN PHOSPHATE
     Dosage: 100 MG / DAILY
     Route: 048

REACTIONS (6)
  - Product physical issue [Unknown]
  - Wrong technique in product usage process [Unknown]
  - Poor quality product administered [Unknown]
  - Product dispensing error [Unknown]
  - Product colour issue [Unknown]
  - No adverse event [Unknown]
